FAERS Safety Report 15427703 (Version 1)
Quarter: 2018Q3

REPORT INFORMATION
  Report Type: Spontaneous
  Country: US (occurrence: US)
  Receive Date: 20180925
  Receipt Date: 20180925
  Transmission Date: 20181010
  Serious: No
  Sender: FDA-Public Use
  Company Number: US-GLAXOSMITHKLINE-US2018GSK171534

PATIENT
  Sex: Female

DRUGS (1)
  1. MEPRON [Suspect]
     Active Substance: ATOVAQUONE
     Indication: PRODUCT USED FOR UNKNOWN INDICATION
     Dosage: 750MG
     Route: 048
     Dates: end: 201805

REACTIONS (6)
  - Feeling abnormal [Unknown]
  - Chills [Unknown]
  - Lung disorder [Unknown]
  - Dyspnoea [Unknown]
  - Pyrexia [Unknown]
  - Fatigue [Unknown]
